FAERS Safety Report 19515015 (Version 1)
Quarter: 2021Q3

REPORT INFORMATION
  Report Type: Spontaneous
  Country: CH (occurrence: CH)
  Receive Date: 20210709
  Receipt Date: 20210709
  Transmission Date: 20211014
  Serious: Yes (Other)
  Sender: FDA-Public Use
  Company Number: CH-TAKEDA-2021TUS041459

PATIENT
  Age: 35 Year
  Sex: Female

DRUGS (11)
  1. ICATIBANT [Suspect]
     Active Substance: ICATIBANT ACETATE
     Indication: C1 ESTERASE INHIBITOR DECREASED
     Dosage: UNK
     Route: 065
  2. CERAZETTE [Concomitant]
     Dosage: UNK
  3. VITAMIN K [Concomitant]
     Active Substance: PHYTONADIONE
     Indication: OSTEOPENIA
     Dosage: UNK
  4. LORATADINE. [Concomitant]
     Active Substance: LORATADINE
     Dosage: UNK
     Dates: start: 200908
  5. ICATIBANT [Suspect]
     Active Substance: ICATIBANT ACETATE
     Indication: C1 ESTERASE INHIBITOR DECREASED
     Dosage: UNK
     Route: 065
  6. THEOPHYLLINE [Concomitant]
     Active Substance: THEOPHYLLINE ANHYDROUS
     Dosage: UNK
  7. HALIBUT [Concomitant]
     Active Substance: PACIFIC HALIBUT
     Dosage: UNK
  8. TERBUTALINE [Concomitant]
     Active Substance: TERBUTALINE
     Dosage: UNK
  9. FUROSEMIDE. [Concomitant]
     Active Substance: FUROSEMIDE
     Indication: OEDEMA PERIPHERAL
     Dosage: UNK
  10. HUMAN NORMAL IMMUNOGLOBULIN [Suspect]
     Active Substance: HUMAN IMMUNOGLOBULIN G
     Indication: CAPILLARY LEAK SYNDROME
     Dosage: UNK UNK, Q3WEEKS
     Route: 042
     Dates: start: 200909
  11. PREDNISOLONE. [Concomitant]
     Active Substance: PREDNISOLONE
     Dosage: UNK
     Dates: start: 200908

REACTIONS (2)
  - Meningitis aseptic [Unknown]
  - Off label use [Unknown]
